FAERS Safety Report 7076997 (Version 2)
Quarter: 2014Q3

REPORT INFORMATION
  Report Type: Spontaneous
  Country: US (occurrence: None)
  Receive Date: 20090803
  Receipt Date: 20140703
  Transmission Date: 20150326
  Serious: Yes (Hospitalization, Other)
  Sender: FDA-Public Use
  Company Number: 2009S1005962

PATIENT
  Age: 50 Year
  Sex: Female
  Weight: 102.51 kg

DRUGS (10)
  1. LISINOPRIL(LISINOPRIL) [Concomitant]
     Active Substance: LISINOPRIL
  2. PHOSPHO-SODA [Suspect]
     Active Substance: SODIUM PHOSPHATE, DIBASIC\SODIUM PHOSPHATE, MONOBASIC
     Indication: COLONOSCOPY
     Route: 048
     Dates: start: 20080901, end: 20080901
  3. PREDNISONE (PREDNISONE) [Concomitant]
     Active Substance: PREDNISONE
  4. ACTOS [Concomitant]
     Active Substance: PIOGLITAZONE HYDROCHLORIDE
  5. HYDROCODONE (HYDROCODONE) [Concomitant]
     Active Substance: HYDROCODONE
  6. METOPROLOL (METOPROLOL) [Concomitant]
     Active Substance: METOPROLOL
  7. PROMETHIZINE [Concomitant]
     Active Substance: PROMETHAZINE HYDROCHLORIDE
  8. LOPERAMIDE [Concomitant]
     Active Substance: LOPERAMIDE
  9. LIDODERM [Concomitant]
     Active Substance: LIDOCAINE
  10. CLONIDINE (CLONIDINE) [Concomitant]
     Active Substance: CLONIDINE

REACTIONS (39)
  - Nausea [None]
  - Metabolic acidosis [None]
  - Somnolence [None]
  - Lumbar spinal stenosis [None]
  - Sleep apnoea syndrome [None]
  - Malaise [None]
  - Hypokalaemia [None]
  - Hypotension [None]
  - Haemoglobin decreased [None]
  - Hypovolaemia [None]
  - Headache [None]
  - Chest pain [None]
  - Abdominal pain [None]
  - Urinary tract infection [None]
  - Hypertension [None]
  - Vision blurred [None]
  - Renal failure [None]
  - Diarrhoea [None]
  - Asthenia [None]
  - Gastroenteritis [None]
  - Inflammation [None]
  - Drug intolerance [None]
  - Bronchitis [None]
  - Fatigue [None]
  - Renal failure acute [None]
  - Palpitations [None]
  - Renal tubular disorder [None]
  - Therapy cessation [None]
  - Dizziness [None]
  - Cataract [None]
  - Renal tubular acidosis [None]
  - Ear pain [None]
  - Renal failure chronic [None]
  - Blood chloride increased [None]
  - Vomiting [None]
  - Back pain [None]
  - Fall [None]
  - Dehydration [None]
  - Dyspnoea [None]

NARRATIVE: CASE EVENT DATE: 20080904
